FAERS Safety Report 4363746-X (Version None)
Quarter: 2004Q2

REPORT INFORMATION
  Report Type: 
  Country: None (occurrence: None)
  Receive Date: 20040520
  Receipt Date: 20040520
  Transmission Date: 20050107
  Serious: Yes (Life-Threatening, Hospitalization)
  Sender: FDA-Public Use
  Company Number: None

PATIENT
  Sex: Male
  Weight: 11.2 kg

DRUGS (2)
  1. MAXIPIME [Suspect]
     Indication: OSTEOMYELITIS
     Dosage: 560 MG IV Q8H
     Route: 042
     Dates: start: 20040423
  2. MAXIPIME [Suspect]
     Indication: OSTEOMYELITIS
     Dosage: 560 MG IV Q8H
     Route: 042
     Dates: start: 20040513

REACTIONS (4)
  - DECREASED APPETITE [None]
  - DIARRHOEA [None]
  - LEUKOPENIA [None]
  - SERUM SICKNESS [None]
